FAERS Safety Report 20311206 (Version 1)
Quarter: 2022Q1

REPORT INFORMATION
  Report Type: Spontaneous
  Country: CN (occurrence: CN)
  Receive Date: 20220107
  Receipt Date: 20220107
  Transmission Date: 20220423
  Serious: Yes (Other)
  Sender: FDA-Public Use
  Company Number: CN-009507513-2201CHN000146

PATIENT
  Age: 55 Year
  Sex: Male
  Weight: 68.5 kg

DRUGS (6)
  1. KEYTRUDA [Suspect]
     Active Substance: PEMBROLIZUMAB
     Indication: Gallbladder cancer
     Dosage: 100 MG, Q3W
     Route: 041
     Dates: start: 20211123, end: 20211123
  2. GEMCITABINE HYDROCHLORIDE [Suspect]
     Active Substance: GEMCITABINE HYDROCHLORIDE
     Indication: Gallbladder cancer
     Dosage: 1.6 G, 1 TIME/DAY (QD),D1,D7
     Route: 041
     Dates: start: 20211123, end: 20211129
  3. CISPLATIN [Suspect]
     Active Substance: CISPLATIN
     Indication: Gallbladder cancer
     Dosage: 90 MG, 1 TIME/DAY (QD)
     Route: 041
     Dates: start: 20211123, end: 20211123
  4. SODIUM CHLORIDE [Concomitant]
     Active Substance: SODIUM CHLORIDE
     Indication: Gallbladder cancer
     Dosage: 100 ML, Q3W
     Route: 041
     Dates: start: 20211123, end: 20211123
  5. SODIUM CHLORIDE [Concomitant]
     Active Substance: SODIUM CHLORIDE
     Dosage: 100 ML, 1 TIME/DAY (QD)
     Route: 041
     Dates: start: 20211123, end: 20211129
  6. SODIUM CHLORIDE [Concomitant]
     Active Substance: SODIUM CHLORIDE
     Dosage: 500 ML, 1 TIME/DAY (ONCE)
     Route: 041
     Dates: start: 20211123, end: 20211123

REACTIONS (6)
  - White blood cell count decreased [Recovered/Resolved]
  - Neutrophil count decreased [Recovered/Resolved]
  - Platelet count decreased [Recovered/Resolved]
  - Product use in unapproved indication [Unknown]
  - Product use issue [Unknown]
  - Underdose [Unknown]

NARRATIVE: CASE EVENT DATE: 20211123
